FAERS Safety Report 5621650-0 (Version None)
Quarter: 2008Q1

REPORT INFORMATION
  Report Type: 
  Country: None (occurrence: None)
  Receive Date: 20080130
  Receipt Date: 20080114
  Transmission Date: 20080703
  Serious: Yes (Other)
  Sender: FDA-Public Use
  Company Number: B0505013A

PATIENT
  Age: 49 Year
  Sex: Male

DRUGS (2)
  1. NICOTINE POLACRILEX [Suspect]
     Dosage: 20 GUM/PER DAY/TRANSBUCCAL
     Route: 002
  2. FLUOXETINE [Concomitant]

REACTIONS (9)
  - DEPENDENCE [None]
  - DEPRESSION [None]
  - DISTURBANCE IN ATTENTION [None]
  - DIZZINESS [None]
  - DRUG DEPENDENCE [None]
  - FEELING COLD [None]
  - MALAISE [None]
  - SELF-MEDICATION [None]
  - STRESS [None]
